FAERS Safety Report 6270576-0 (Version None)
Quarter: 2009Q3

REPORT INFORMATION
  Report Type: 
  Country: None (occurrence: None)
  Receive Date: 20090716
  Receipt Date: 20090706
  Transmission Date: 20100115
  Serious: Yes (Other)
  Sender: FDA-Public Use
  Company Number: JP-PFIZER INC-2009233175

PATIENT
  Age: 60 Year

DRUGS (1)
  1. NORVASC [Suspect]
     Route: 048

REACTIONS (1)
  - RHABDOMYOLYSIS [None]
